FAERS Safety Report 9676305 (Version 2)
Quarter: 2013Q4

REPORT INFORMATION
  Report Type: Spontaneous
  Country: US (occurrence: US)
  Receive Date: 20131107
  Receipt Date: 20131122
  Transmission Date: 20140711
  Serious: Yes (Hospitalization, Other)
  Sender: FDA-Public Use
  Company Number: US-GILEAD-2013-0087048

PATIENT
  Age: 46 Year
  Sex: Male

DRUGS (12)
  1. LETAIRIS [Suspect]
     Indication: PULMONARY HYPERTENSION
     Dosage: 10 MG, UNK
     Route: 048
     Dates: start: 20081124
  2. HUMALOG [Concomitant]
  3. ADVAIR [Concomitant]
  4. WARFARIN [Concomitant]
  5. LASIX                              /00032601/ [Concomitant]
  6. HYDRALAZINE [Concomitant]
  7. ARICEPT [Concomitant]
  8. LISINOPRIL [Concomitant]
  9. REVATIO [Concomitant]
  10. TORSEMIDE [Concomitant]
  11. REQUIP [Concomitant]
  12. PREDNISONE [Concomitant]

REACTIONS (3)
  - Haematemesis [Unknown]
  - Pyrexia [Unknown]
  - Debridement [Unknown]
